FAERS Safety Report 15650548 (Version 1)
Quarter: 2018Q4

REPORT INFORMATION
  Report Type: Spontaneous
  Country: FR (occurrence: FR)
  Receive Date: 20181123
  Receipt Date: 20181123
  Transmission Date: 20190205
  Serious: Yes (Hospitalization, Other)
  Sender: FDA-Public Use
  Company Number: FR-BRISTOL-MYERS SQUIBB COMPANY-BMS-2018-110441

PATIENT
  Age: 53 Year
  Sex: Female
  Weight: 85 kg

DRUGS (11)
  1. OFLOXACINE [Suspect]
     Active Substance: OFLOXACIN
     Indication: PERITONITIS
     Dosage: 400 MG, 1 DAY
     Route: 042
     Dates: start: 20180908, end: 20180909
  2. SPASFON                            /00765801/ [Concomitant]
     Active Substance: PHLOROGLUCINOL\1,3,5-TRIMETHOXYBENZENE
     Indication: PRODUCT USED FOR UNKNOWN INDICATION
     Dosage: UNK
     Route: 042
  3. AZACTAM [Suspect]
     Active Substance: AZTREONAM
     Indication: PERITONITIS
     Dosage: 6 G, 1 DAY
     Route: 042
     Dates: start: 20180909, end: 20180910
  4. CLINDAMYCINE                       /00166002/ [Suspect]
     Active Substance: CLINDAMYCIN HYDROCHLORIDE
     Indication: PERITONITIS
     Dosage: 1800 MG, 1 DAY
     Route: 048
     Dates: start: 20180909, end: 20181010
  5. METRONIDAZOLE. [Suspect]
     Active Substance: METRONIDAZOLE
     Indication: PERITONITIS
     Dosage: 1500 MG, 1 DAY
     Route: 042
     Dates: start: 20180908, end: 20180909
  6. TYGACIL [Concomitant]
     Active Substance: TIGECYCLINE
     Indication: PRODUCT USED FOR UNKNOWN INDICATION
     Dosage: UNK
     Route: 042
  7. PARACETAMOL [Concomitant]
     Active Substance: ACETAMINOPHEN
     Indication: PRODUCT USED FOR UNKNOWN INDICATION
     Dosage: 4 G, PER DAY
     Route: 042
     Dates: start: 20180908, end: 20180909
  8. LOVENOX [Concomitant]
     Active Substance: ENOXAPARIN SODIUM
     Indication: PRODUCT USED FOR UNKNOWN INDICATION
     Dosage: 1 DF=1T, 1 DAY
     Route: 058
     Dates: start: 20180910, end: 20180911
  9. CETIRIZINE [Concomitant]
     Active Substance: CETIRIZINE HYDROCHLORIDE
     Indication: PRODUCT USED FOR UNKNOWN INDICATION
     Dosage: 10 MG, 1 DAY
     Route: 048
     Dates: start: 20180909, end: 20181010
  10. HYDROXYZINE [Concomitant]
     Active Substance: HYDROXYZINE HYDROCHLORIDE
     Indication: PRODUCT USED FOR UNKNOWN INDICATION
     Dosage: 50 MG, PER DAY
     Route: 048
     Dates: start: 20180909, end: 20180910
  11. DOLIPRANE [Concomitant]
     Active Substance: ACETAMINOPHEN
     Indication: PRODUCT USED FOR UNKNOWN INDICATION
     Dosage: 4 G, PER DAY
     Route: 048
     Dates: start: 20180909, end: 20180910

REACTIONS (1)
  - Skin reaction [Recovered/Resolved]

NARRATIVE: CASE EVENT DATE: 20180908
